FAERS Safety Report 14929313 (Version 2)
Quarter: 2018Q2

REPORT INFORMATION
  Report Type: Report from Study
  Country: IL (occurrence: IL)
  Receive Date: 20180523
  Receipt Date: 20180524
  Transmission Date: 20180711
  Serious: Yes (Death, Hospitalization, Other)
  Sender: FDA-Public Use
  Company Number: IL-BAYER-2016-234981

PATIENT
  Age: 64 Year
  Sex: Female

DRUGS (13)
  1. MONOCORD [Concomitant]
     Dosage: UNK
  2. ASPIRIN. [Suspect]
     Active Substance: ASPIRIN
     Indication: PROSTHETIC CARDIAC VALVE THROMBOSIS
     Dosage: UNK
     Dates: start: 201802
  3. SIMOVIL [Concomitant]
     Active Substance: SIMVASTATIN
     Dosage: UNK
  4. OPSUMIT [Concomitant]
     Active Substance: MACITENTAN
     Dosage: UNK
  5. VENTAVIS [Suspect]
     Active Substance: ILOPROST
     Indication: PULMONARY HYPERTENSION
     Dosage: UNK
     Dates: start: 20120109
  6. PLAQUENIL [Concomitant]
     Active Substance: HYDROXYCHLOROQUINE SULFATE
     Dosage: UNK
  7. CALCIUM +VIT D [Concomitant]
     Active Substance: CALCIUM\VITAMIN D
     Dosage: UNK
  8. ALPHA D [Concomitant]
     Dosage: UNK
  9. LOSEC [Concomitant]
     Active Substance: OMEPRAZOLE
     Dosage: UNK
  10. TRAMADEX [Concomitant]
     Active Substance: TRAMADOL
     Dosage: UNK
  11. CALCIUM +VIT D [Concomitant]
     Active Substance: CALCIUM\VITAMIN D
     Dosage: UNK
  12. AHISTON [Concomitant]
     Active Substance: CHLORPHENIRAMINE MALEATE
  13. CHLORPHENAMINE [Concomitant]
     Active Substance: CHLORPHENIRAMINE MALEATE
     Dosage: UNK

REACTIONS (19)
  - Dyspnoea [None]
  - Dyspnoea [Recovering/Resolving]
  - Chest discomfort [Not Recovered/Not Resolved]
  - Haemoglobin decreased [Recovered/Resolved]
  - Tachycardia [None]
  - Angina pectoris [None]
  - Cough [Recovered/Resolved]
  - Haemoglobin decreased [None]
  - Fatigue [Not Recovered/Not Resolved]
  - Dyspnoea [Recovering/Resolving]
  - Coronary artery bypass [Fatal]
  - Tachypnoea [None]
  - Chest pain [None]
  - General physical health deterioration [None]
  - Haemodynamic instability [None]
  - Dyspnoea [Recovered/Resolved]
  - Chest pain [Recovering/Resolving]
  - Coronary artery occlusion [None]
  - Prosthetic cardiac valve thrombosis [Recovered/Resolved]

NARRATIVE: CASE EVENT DATE: 201612
